FAERS Safety Report 6669200-4 (Version None)
Quarter: 2010Q2

REPORT INFORMATION
  Report Type: 
  Country: None (occurrence: None)
  Receive Date: 20100406
  Receipt Date: 20100402
  Transmission Date: 20101027
  Serious: Yes (Hospitalization, Other)
  Sender: FDA-Public Use
  Company Number: BE-ROXANE LABORATORIES, INC.-2010-RO-00371RO

PATIENT
  Age: 65 Year
  Sex: Female

DRUGS (2)
  1. METHADONE HCL [Suspect]
     Indication: PAIN
     Route: 048
  2. METHADONE HCL [Suspect]
     Route: 048

REACTIONS (3)
  - ACCIDENTAL OVERDOSE [None]
  - DRUG DISPENSING ERROR [None]
  - LEUKOENCEPHALOPATHY [None]
